FAERS Safety Report 4276138-9 (Version None)
Quarter: 2004Q1

REPORT INFORMATION
  Report Type: 
  Country: None (occurrence: None)
  Receive Date: 20040121
  Receipt Date: 20031030
  Transmission Date: 20041129
  Serious: No
  Sender: FDA-Public Use
  Company Number: US-GLAXOSMITHKLINE-A0432495A

PATIENT
  Sex: Female

DRUGS (2)
  1. VALTREX [Suspect]
     Dosage: 1G THREE TIMES PER DAY
     Route: 048
     Dates: start: 20030101
  2. PREVACID [Concomitant]
     Route: 065

REACTIONS (3)
  - BACK PAIN [None]
  - BURNING SENSATION [None]
  - MUSCULOSKELETAL STIFFNESS [None]
